FAERS Safety Report 8510770 (Version 2)
Quarter: 2013Q2

REPORT INFORMATION
  Report Type: Spontaneous
  Country: US (occurrence: US)
  Receive Date: 20120413
  Receipt Date: 20130507
  Transmission Date: 20140414
  Serious: Yes (Hospitalization)
  Sender: FDA-Public Use
  Company Number: US-GLAXOSMITHKLINE-A0868227A

PATIENT
  Age: 39 Year
  Sex: Male

DRUGS (1)
  1. AVANDAMET [Suspect]
     Indication: DIABETES MELLITUS
     Dosage: 2TABS TWICE PER DAY
     Route: 048
     Dates: start: 19980101, end: 200512

REACTIONS (3)
  - Cerebrovascular accident [Not Recovered/Not Resolved]
  - Visual impairment [Unknown]
  - Tinnitus [Unknown]
